FAERS Safety Report 10531160 (Version 3)
Quarter: 2014Q4

REPORT INFORMATION
  Report Type: Report from Study
  Country: US (occurrence: US)
  Receive Date: 20141021
  Receipt Date: 20141202
  Transmission Date: 20150529
  Serious: Yes (Other)
  Sender: FDA-Public Use
  Company Number: US-SA-2014SA050410

PATIENT
  Age: 64 Year
  Sex: Male

DRUGS (1)
  1. AUBAGIO [Suspect]
     Active Substance: TERIFLUNOMIDE
     Indication: MULTIPLE SCLEROSIS
     Route: 048
     Dates: start: 20140414

REACTIONS (7)
  - Cataract operation [Unknown]
  - Arthralgia [Unknown]
  - Affect lability [Unknown]
  - Joint swelling [Unknown]
  - Personality change [Not Recovered/Not Resolved]
  - Localised infection [Recovered/Resolved]
  - Diarrhoea [Recovered/Resolved]

NARRATIVE: CASE EVENT DATE: 2014
